FAERS Safety Report 6196816-4 (Version None)
Quarter: 2009Q2

REPORT INFORMATION
  Report Type: 
  Country: None (occurrence: None)
  Receive Date: 20090520
  Receipt Date: 20090507
  Transmission Date: 20091009
  Serious: Yes (Hospitalization)
  Sender: FDA-Public Use
  Company Number: TW-ROCHE-628511

PATIENT
  Sex: Male
  Weight: 41.2 kg

DRUGS (3)
  1. INTERFERON ALFA-2A [Suspect]
     Indication: RENAL CELL CARCINOMA
     Dosage: FREQUENCY REPORTED AS TIW.DOSE: 3 MIU/1 SYRG.
     Route: 058
     Dates: start: 20061020, end: 20081024
  2. INTERFERON ALFA-2A [Suspect]
     Dosage: FREQUENCY: TIW, DOSE: 9 MIU/ 1 SYRG.
     Route: 058
     Dates: start: 20081027, end: 20090410
  3. BEVACIZUMAB [Suspect]
     Indication: RENAL CELL CARCINOMA
     Dosage: DOSE: 400 MG/ 1 VIAL, FREQUENCY REPORTED AS EVERY OTHER WEEK.
     Route: 042
     Dates: start: 20081020, end: 20090406

REACTIONS (1)
  - HIP FRACTURE [None]
